FAERS Safety Report 5736996-5 (Version None)
Quarter: 2008Q2

REPORT INFORMATION
  Report Type: 
  Country: None (occurrence: None)
  Receive Date: 20080514
  Receipt Date: 20080508
  Transmission Date: 20081010
  Serious: Yes (Other)
  Sender: FDA-Public Use
  Company Number: US-BRISTOL-MYERS SQUIBB COMPANY-14188205

PATIENT
  Age: 55 Year
  Sex: Female

DRUGS (6)
  1. PRINIVIL [Suspect]
     Route: 048
     Dates: start: 20060311, end: 20060326
  2. CYTOXAN [Suspect]
     Route: 065
     Dates: start: 20051210, end: 20060326
  3. CARDIZEM [Suspect]
     Route: 048
     Dates: start: 20060110, end: 20060317
  4. AMARYL [Concomitant]
  5. PROTONIX [Concomitant]
  6. CORTICOSTEROID [Concomitant]

REACTIONS (3)
  - BLOOD CHOLESTEROL INCREASED [None]
  - BLOOD TRIGLYCERIDES INCREASED [None]
  - HEPATITIS CHOLESTATIC [None]
